FAERS Safety Report 8609658-4 (Version None)
Quarter: 2012Q3

REPORT INFORMATION
  Report Type: 
  Country: None (occurrence: None)
  Receive Date: 20120821
  Receipt Date: 20120810
  Transmission Date: 20120928
  Serious: Yes (Hospitalization)
  Sender: FDA-Public Use
  Company Number: US-ACTELION-A-US2012-63793

PATIENT
  Age: 70 Year
  Sex: Female
  Weight: 43.991 kg

DRUGS (6)
  1. EPOPROSTENOL SODIUM [Suspect]
     Dosage: 25 NG/KG, PER MIN
     Route: 042
  2. WARFARIN SODIUM [Concomitant]
  3. SILDENAFIL [Concomitant]
     Dosage: UNK
     Dates: start: 20100329
  4. EPOPROSTENOL SODIUM [Suspect]
     Indication: PULMONARY ARTERIAL HYPERTENSION
     Dosage: 8 NG/KG, PER MIN
     Route: 042
     Dates: start: 20110517
  5. TRACLEER [Suspect]
     Indication: PULMONARY ARTERIAL HYPERTENSION
     Dosage: 125 MG, BID
     Route: 048
     Dates: start: 20100730
  6. TRACLEER [Suspect]
     Dosage: 62.5 MG, BID
     Route: 048
     Dates: start: 20100802, end: 20100901

REACTIONS (11)
  - FAECES DISCOLOURED [None]
  - HAEMOGLOBIN DECREASED [None]
  - TRANSFUSION [None]
  - GASTROINTESTINAL HAEMORRHAGE [None]
  - ANAEMIA [None]
  - DYSPNOEA [None]
  - SOMNOLENCE [None]
  - HAEMATOCRIT DECREASED [None]
  - PALLOR [None]
  - MINERAL SUPPLEMENTATION [None]
  - FATIGUE [None]
